FAERS Safety Report 15579849 (Version 2)
Quarter: 2018Q4

REPORT INFORMATION
  Report Type: Spontaneous
  Country: GB (occurrence: GB)
  Receive Date: 20181102
  Receipt Date: 20181114
  Transmission Date: 20190205
  Serious: Yes (Death, Life-Threatening, Disabling, Other)
  Sender: FDA-Public Use
  Company Number: GB-TEVA-2018-GB-970854

PATIENT
  Age: 88 Year
  Sex: Female
  Weight: 50 kg

DRUGS (14)
  1. RIVASTIGMINE. [Suspect]
     Active Substance: RIVASTIGMINE
     Indication: AMNESIA
     Dosage: 9 MILLIGRAM DAILY;
     Route: 048
     Dates: start: 20171201, end: 20180924
  2. CEFALEXIN [Concomitant]
     Active Substance: CEPHALEXIN
     Route: 048
  3. PRAVASTATIN. [Concomitant]
     Active Substance: PRAVASTATIN
  4. ACETYLSALICYLIC ACID [Concomitant]
     Active Substance: ASPIRIN
  5. ISOTARD XL [Concomitant]
  6. CO-CARELDOPA [Concomitant]
     Active Substance: CARBIDOPA\LEVODOPA
  7. LANSOPRAZOLE. [Concomitant]
     Active Substance: LANSOPRAZOLE
  8. LEVOTHYROXINE. [Concomitant]
     Active Substance: LEVOTHYROXINE
  9. FUROSEMIDE. [Concomitant]
     Active Substance: FUROSEMIDE
  10. SELEGILINE [Concomitant]
     Active Substance: SELEGILINE
  11. CYANOCOBALAMIN. [Concomitant]
     Active Substance: CYANOCOBALAMIN
  12. FEXOFENADINE [Concomitant]
     Active Substance: FEXOFENADINE\FEXOFENADINE HYDROCHLORIDE
  13. PREGABALIN. [Concomitant]
     Active Substance: PREGABALIN
  14. NITROFURANTOIN. [Concomitant]
     Active Substance: NITROFURANTOIN

REACTIONS (2)
  - Non-Hodgkin^s lymphoma [Fatal]
  - Soft tissue mass [Fatal]

NARRATIVE: CASE EVENT DATE: 20180201
